FAERS Safety Report 11618612 (Version 1)
Quarter: 2015Q4

REPORT INFORMATION
  Report Type: Report from Study
  Country: US (occurrence: US)
  Receive Date: 20151012
  Receipt Date: 20151012
  Transmission Date: 20160304
  Serious: No
  Sender: FDA-Public Use
  Company Number: US-AMGEN-USASL2015104069

PATIENT
  Age: 37 Year
  Sex: Female

DRUGS (2)
  1. ENBREL [Suspect]
     Active Substance: ETANERCEPT
     Indication: ANKYLOSING SPONDYLITIS
     Dosage: 50 MG, QWK
     Route: 065
     Dates: start: 20150604
  2. METHOTREXATE [Suspect]
     Active Substance: METHOTREXATE
     Indication: PRODUCT USED FOR UNKNOWN INDICATION
     Dosage: TOTAL OF 20 MG, 10 MG IN THE MORNING, 10 MG IN THE EVENING.
     Route: 065

REACTIONS (7)
  - Pain [Recovered/Resolved]
  - Pain in extremity [Unknown]
  - Hypoaesthesia [Recovered/Resolved]
  - Rash macular [Recovered/Resolved]
  - Bronchitis [Unknown]
  - Paraesthesia [Recovered/Resolved]
  - Rash papular [Not Recovered/Not Resolved]

NARRATIVE: CASE EVENT DATE: 201509
